FAERS Safety Report 13382889 (Version 4)
Quarter: 2017Q3

REPORT INFORMATION
  Report Type: Spontaneous
  Country: FR (occurrence: FR)
  Receive Date: 20170329
  Receipt Date: 20170705
  Transmission Date: 20171127
  Serious: Yes (Life-Threatening, Other)
  Sender: FDA-Public Use
  Company Number: FR-PFIZER INC-2017129362

PATIENT
  Age: 57 Year
  Sex: Male

DRUGS (10)
  1. AMLODIPINE W/VALSARTAN [Concomitant]
     Active Substance: AMLODIPINE\VALSARTAN
     Dosage: UNK
  2. FOLINIC ACID [Concomitant]
     Active Substance: LEUCOVORIN
     Dosage: UNK
  3. VECTIBIX [Suspect]
     Active Substance: PANITUMUMAB
     Indication: ADENOCARCINOMA OF COLON
     Dosage: 660 MG (6 MG/KG), OVER 1 HOUR
     Route: 042
     Dates: start: 20170302, end: 20170315
  4. CALCIUM LEVOFOLINATE ZENTIVA [Suspect]
     Active Substance: LEVOLEUCOVORIN CALCIUM
     Dosage: 400 MG, OVER 2 HOURS
     Route: 042
     Dates: start: 20170302, end: 20170315
  5. EMEND [Concomitant]
     Active Substance: APREPITANT
     Dosage: UNK
  6. FLUOROURACIL. [Concomitant]
     Active Substance: FLUOROURACIL
     Dosage: UNK
     Route: 041
  7. OXALIPLATIN. [Suspect]
     Active Substance: OXALIPLATIN
     Indication: ADENOCARCINOMA OF COLON
     Dosage: 127.5 MG (85 MG/M2), OVER 2 HOURS
     Route: 042
     Dates: start: 20170302, end: 20170315
  8. VECTIBIX [Suspect]
     Active Substance: PANITUMUMAB
     Dosage: 660 MG (6 MG/KG), OVER 1 HOUR
     Route: 042
     Dates: start: 20170302, end: 20170315
  9. CRESTOR [Concomitant]
     Active Substance: ROSUVASTATIN CALCIUM
     Dosage: UNK
  10. DOXYCYCLIN /00055701/ [Concomitant]
     Active Substance: DOXYCYCLINE
     Dosage: UNK

REACTIONS (13)
  - Disseminated intravascular coagulation [Recovered/Resolved]
  - Acute kidney injury [Recovered/Resolved]
  - Pyrexia [Recovered/Resolved]
  - Paroxysmal nocturnal haemoglobinuria [Unknown]
  - Nausea [Recovered/Resolved]
  - Catheter site infection [Unknown]
  - Folliculitis [Unknown]
  - Abdominal hernia [Unknown]
  - Hypertension [Recovered/Resolved]
  - Back pain [Recovered/Resolved]
  - Tachycardia [Unknown]
  - Porphyria [Unknown]
  - Fatigue [Unknown]

NARRATIVE: CASE EVENT DATE: 201703
